FAERS Safety Report 14267646 (Version 1)
Quarter: 2017Q4

REPORT INFORMATION
  Report Type: Spontaneous
  Country: US (occurrence: US)
  Receive Date: 20171210
  Receipt Date: 20171210
  Transmission Date: 20180321
  Serious: No
  Sender: FDA-Public Use
  Company Number: None

PATIENT
  Age: 30 Year
  Sex: Female
  Weight: 101.25 kg

DRUGS (4)
  1. VITAMIN D [Concomitant]
     Active Substance: CHOLECALCIFEROL
  2. YAZ [Concomitant]
     Active Substance: DROSPIRENONE\ETHINYL ESTRADIOL
  3. DULOXETINE. [Suspect]
     Active Substance: DULOXETINE
     Indication: GENERALISED ANXIETY DISORDER
     Dosage: ?          QUANTITY:1 CAPSULE(S);?
     Route: 048
     Dates: start: 20070501, end: 20171210
  4. CLARITIN [Concomitant]
     Active Substance: LORATADINE

REACTIONS (7)
  - Dizziness [None]
  - Nausea [None]
  - Sleep disorder [None]
  - Paraesthesia [None]
  - Withdrawal syndrome [None]
  - Headache [None]
  - Depression [None]

NARRATIVE: CASE EVENT DATE: 20171210
